FAERS Safety Report 5030331-6 (Version None)
Quarter: 2006Q2

REPORT INFORMATION
  Report Type: 
  Country: None (occurrence: None)
  Receive Date: 20060615
  Receipt Date: 20060531
  Transmission Date: 20061013
  Serious: Yes (Hospitalization)
  Sender: FDA-Public Use
  Company Number: US200605006839

PATIENT
  Sex: Female

DRUGS (1)
  1. CYMBALTA [Suspect]

REACTIONS (2)
  - COLITIS ISCHAEMIC [None]
  - THROMBOSIS [None]
